FAERS Safety Report 4800148-3 (Version None)
Quarter: 2005Q4

REPORT INFORMATION
  Report Type: 
  Country: None (occurrence: None)
  Receive Date: 20051012
  Receipt Date: 20051012
  Transmission Date: 20060501
  Serious: Yes (Death, Hospitalization)
  Sender: FDA-Public Use
  Company Number: None

PATIENT
  Sex: Female
  Weight: 88.3 kg

DRUGS (2)
  1. CYTARABINE [Suspect]
     Indication: ACUTE MYELOID LEUKAEMIA
     Dosage: SEE IMAGE
     Route: 042
     Dates: start: 20050920, end: 20050926
  2. DAUNORUBICIN HCL [Suspect]
     Dosage: SEE IMAGE
     Route: 042
     Dates: start: 20050922, end: 20050922

REACTIONS (9)
  - ACUTE MYOCARDIAL INFARCTION [None]
  - ALPHA HAEMOLYTIC STREPTOCOCCAL INFECTION [None]
  - BIOPSY BONE MARROW ABNORMAL [None]
  - CATHETER SITE HAEMORRHAGE [None]
  - CHEST PAIN [None]
  - ELECTROCARDIOGRAM QRS COMPLEX PROLONGED [None]
  - FEBRILE NEUTROPENIA [None]
  - HYPOTENSION [None]
  - STREPTOCOCCAL BACTERAEMIA [None]
